FAERS Safety Report 14403478 (Version 1)
Quarter: 2018Q1

REPORT INFORMATION
  Report Type: Spontaneous
  Country: US (occurrence: US)
  Receive Date: 20180116
  Receipt Date: 20180116
  Transmission Date: 20180509
  Serious: No
  Sender: FDA-Public Use
  Company Number: None

PATIENT
  Age: 68 Year
  Sex: Female

DRUGS (1)
  1. ZEPATIER [Suspect]
     Active Substance: ELBASVIR\GRAZOPREVIR
     Dosage: 12/20/2017 STILL ON 1/12/2018
     Route: 048
     Dates: start: 20171220

REACTIONS (1)
  - Insomnia [None]

NARRATIVE: CASE EVENT DATE: 20171220
